FAERS Safety Report 12238383 (Version 1)
Quarter: 2016Q2

REPORT INFORMATION
  Report Type: Spontaneous
  Country: DE (occurrence: DE)
  Receive Date: 20160405
  Receipt Date: 20160405
  Transmission Date: 20160815
  Serious: Yes (Hospitalization)
  Sender: FDA-Public Use
  Company Number: DE-CONCORDIA PHARMACEUTICALS INC.-CO-ZO-DE-2016-042

PATIENT
  Age: 38 Year
  Sex: Male
  Weight: 72 kg

DRUGS (1)
  1. ZONEGRAN [Suspect]
     Active Substance: ZONISAMIDE
     Indication: EPILEPSY
     Dosage: 100 MG IN AM AND 200 MG IN PM
     Route: 048
     Dates: start: 201510, end: 20160229

REACTIONS (3)
  - Steatohepatitis [Not Recovered/Not Resolved]
  - Jaundice [Not Recovered/Not Resolved]
  - Drug-induced liver injury [Not Recovered/Not Resolved]

NARRATIVE: CASE EVENT DATE: 20160215
